FAERS Safety Report 16377768 (Version 1)
Quarter: 2019Q2

REPORT INFORMATION
  Report Type: Spontaneous
  Country: US (occurrence: US)
  Receive Date: 20190404
  Receipt Date: 20190404
  Transmission Date: 20190711
  Serious: Yes (Death, Other)
  Sender: FDA-Public Use
  Company Number: None

PATIENT
  Sex: Male

DRUGS (2)
  1. ELIGARD [Suspect]
     Active Substance: LEUPROLIDE ACETATE
     Indication: RETINAL OEDEMA
     Dosage: ?          OTHER FREQUENCY:NEVER DISPENSED;?
     Route: 058
  2. NO MED LIST AVAILABLE [Concomitant]

REACTIONS (1)
  - Death [None]
